FAERS Safety Report 18230557 (Version 2)
Quarter: 2021Q3

REPORT INFORMATION
  Report Type: Other
  Country: GB (occurrence: ES)
  Receive Date: 20200904
  Receipt Date: 20210811
  Transmission Date: 20211014
  Serious: Yes (Death, Hospitalization, Other)
  Sender: FDA-Public Use
  Company Number: ES-ASTELLAS-2020US030349

PATIENT
  Age: 48 Year
  Sex: Female

DRUGS (11)
  1. BISOPROLOL [Concomitant]
     Active Substance: BISOPROLOL
     Indication: PRODUCT USED FOR UNKNOWN INDICATION
     Route: 065
  2. IMATINIB. [Interacting]
     Active Substance: IMATINIB MESYLATE
     Route: 065
  3. BEMIPARIN [Concomitant]
     Active Substance: BEMIPARIN
     Indication: PRODUCT USED FOR UNKNOWN INDICATION
     Route: 065
  4. IMATINIB. [Interacting]
     Active Substance: IMATINIB MESYLATE
     Indication: LUNG ADENOCARCINOMA
     Route: 065
  5. IMATINIB. [Interacting]
     Active Substance: IMATINIB MESYLATE
     Route: 065
  6. INSULIN GLARGINE [Concomitant]
     Active Substance: INSULIN GLARGINE
     Indication: PRODUCT USED FOR UNKNOWN INDICATION
     Route: 065
  7. REPAGLINIDE. [Concomitant]
     Active Substance: REPAGLINIDE
     Indication: PRODUCT USED FOR UNKNOWN INDICATION
     Route: 065
  8. IMATINIB. [Interacting]
     Active Substance: IMATINIB MESYLATE
     Indication: CHRONIC MYELOID LEUKAEMIA
     Route: 048
  9. GEFITINIB. [Interacting]
     Active Substance: GEFITINIB
     Indication: LUNG ADENOCARCINOMA
     Route: 065
  10. GEFITINIB. [Interacting]
     Active Substance: GEFITINIB
     Indication: CHRONIC MYELOID LEUKAEMIA
     Dosage: UNK, UNKNOWN FREQ.
     Route: 048
     Dates: start: 201610, end: 20170608
  11. ERLOTINIB [Suspect]
     Active Substance: ERLOTINIB
     Indication: CHRONIC MYELOID LEUKAEMIA
     Route: 065

REACTIONS (7)
  - Pancreatitis acute [Fatal]
  - Pancreatitis [Recovered/Resolved]
  - Asthenia [Unknown]
  - Off label use [Unknown]
  - Drug interaction [Unknown]
  - Neoplasm progression [Fatal]
  - Gastrointestinal toxicity [Unknown]

NARRATIVE: CASE EVENT DATE: 20170608
